FAERS Safety Report 20538400 (Version 1)
Quarter: 2022Q1

REPORT INFORMATION
  Report Type: Report from Study
  Country: MY (occurrence: MY)
  Receive Date: 20220302
  Receipt Date: 20220302
  Transmission Date: 20220424
  Serious: Yes (Other)
  Sender: FDA-Public Use
  Company Number: MY-JNJFOC-20210850765

PATIENT
  Sex: Female

DRUGS (1)
  1. ERDAFITINIB [Suspect]
     Active Substance: ERDAFITINIB
     Indication: Salivary gland cancer
     Route: 048
     Dates: start: 20201001, end: 20210301

REACTIONS (1)
  - Corneal epithelium defect [Unknown]

NARRATIVE: CASE EVENT DATE: 20210401
